FAERS Safety Report 8889743 (Version 1)
Quarter: 2012Q4

REPORT INFORMATION
  Report Type: 
  Country: SA (occurrence: SA)
  Receive Date: 20121107
  Receipt Date: 20121107
  Transmission Date: 20130627
  Serious: Yes (Other)
  Sender: FDA-Public Use
  Company Number: SA-JNJFOC-20121101184

PATIENT

DRUGS (5)
  1. REOPRO [Suspect]
     Indication: PERCUTANEOUS CORONARY INTERVENTION
     Dosage: 0.25 mcg/kg
     Route: 022
  2. REOPRO [Suspect]
     Indication: PERCUTANEOUS CORONARY INTERVENTION
     Dosage: over 12 hours
     Route: 040
  3. REOPRO [Suspect]
     Indication: PERCUTANEOUS CORONARY INTERVENTION
     Dosage: 0.25 mcg/kg and maintanance dose of 0.125 mcg/kg over 12 hours
     Route: 040
  4. REOPRO [Suspect]
     Indication: PERCUTANEOUS CORONARY INTERVENTION
     Dosage: over 12 hours
     Route: 040
  5. REOPRO [Suspect]
     Indication: PERCUTANEOUS CORONARY INTERVENTION
     Dosage: 0.25 mcg/kg and maintanance dose of 0.125 mcg/kg over 12 hours
     Route: 040

REACTIONS (2)
  - Thrombosis in device [Unknown]
  - Incorrect route of drug administration [Unknown]
